FAERS Safety Report 15981863 (Version 2)
Quarter: 2019Q2

REPORT INFORMATION
  Report Type: Spontaneous
  Country: ES (occurrence: ES)
  Receive Date: 20190219
  Receipt Date: 20190422
  Transmission Date: 20190711
  Serious: Yes (Death, Hospitalization)
  Sender: FDA-Public Use
  Company Number: ES-JNJFOC-20190220447

PATIENT
  Age: 23 Year
  Sex: Male
  Weight: 82 kg

DRUGS (7)
  1. STELARA [Suspect]
     Active Substance: USTEKINUMAB
     Indication: CROHN^S DISEASE
     Route: 058
     Dates: start: 20180718, end: 20190122
  2. URSOBILANE [Concomitant]
     Route: 048
  3. MASTICAL [Concomitant]
     Active Substance: CALCIUM CARBONATE
     Indication: HYPOCALCAEMIA
     Route: 048
  4. TESAVEL [Concomitant]
     Active Substance: SITAGLIPTIN PHOSPHATE
     Indication: DIABETES MELLITUS
     Route: 048
  5. MESALAZINE [Concomitant]
     Active Substance: MESALAMINE
     Indication: CROHN^S DISEASE
     Route: 054
  6. CALCIFEDIOL [Concomitant]
     Active Substance: CALCIFEDIOL
     Indication: OSTEOPOROSIS
     Route: 048
  7. RIFAXIMINA [Concomitant]
     Active Substance: RIFAXIMIN
     Route: 065

REACTIONS (9)
  - Rectal abscess [Fatal]
  - Off label use [Unknown]
  - Pneumocephalus [Fatal]
  - Product use issue [Unknown]
  - Meningitis [Fatal]
  - Anal fistula [Fatal]
  - CNS ventriculitis [Fatal]
  - Multiple organ dysfunction syndrome [Fatal]
  - Septic shock [Fatal]

NARRATIVE: CASE EVENT DATE: 20190205
